FAERS Safety Report 11772743 (Version 1)
Quarter: 2015Q4

REPORT INFORMATION
  Report Type: Spontaneous
  Country: US (occurrence: US)
  Receive Date: 20151124
  Receipt Date: 20151124
  Transmission Date: 20160304
  Serious: Yes (Hospitalization)
  Sender: FDA-Public Use
  Company Number: US-MALLINCKRODT-T201501642

PATIENT
  Age: 21 Year
  Sex: Male

DRUGS (6)
  1. GABLOFEN [Suspect]
     Active Substance: BACLOFEN
     Indication: MUSCLE SPASTICITY
     Dosage: 810.4 MCG/DAY
     Route: 037
     Dates: start: 20141024
  2. KLONOPIN [Concomitant]
     Active Substance: CLONAZEPAM
  3. PSEUDOEPHEDRINE [Concomitant]
     Active Substance: PSEUDOEPHEDRINE
  4. LAMICTAL [Concomitant]
     Active Substance: LAMOTRIGINE
  5. RISPERIDONE. [Concomitant]
     Active Substance: RISPERIDONE
  6. GABLOFEN [Suspect]
     Active Substance: BACLOFEN
     Dosage: UNK
     Route: 037
     Dates: end: 20141024

REACTIONS (4)
  - Device issue [Recovered/Resolved]
  - Irritability [Recovered/Resolved]
  - Muscle spasticity [Recovered/Resolved]
  - Dystonia [Recovered/Resolved]

NARRATIVE: CASE EVENT DATE: 201503
